FAERS Safety Report 19197830 (Version 2)
Quarter: 2021Q2

REPORT INFORMATION
  Report Type: Spontaneous
  Country: US (occurrence: US)
  Receive Date: 20210429
  Receipt Date: 20210505
  Transmission Date: 20210717
  Serious: Yes (Other)
  Sender: FDA-Public Use
  Company Number: US-BIOMARINAP-US-2021-136219

PATIENT
  Age: 34 Year
  Sex: Female

DRUGS (2)
  1. ALDURAZYME [Suspect]
     Active Substance: LARONIDASE
     Indication: MUCOPOLYSACCHARIDOSIS I
     Dosage: 60.9 MILLIGRAM, QW
     Route: 042
     Dates: start: 20050214
  2. ALDURAZYME [Suspect]
     Active Substance: LARONIDASE
     Dosage: 60.9 MILLIGRAM, QW
     Route: 042
     Dates: start: 20180405

REACTIONS (9)
  - Fatigue [Unknown]
  - Somnolence [Unknown]
  - Device issue [Recovered/Resolved]
  - Catheter site swelling [Recovered/Resolved]
  - Oedema peripheral [Unknown]
  - Dyspnoea [Unknown]
  - Mitral valve stenosis [Unknown]
  - Asthenopia [Unknown]
  - Catheter site erythema [Recovered/Resolved]

NARRATIVE: CASE EVENT DATE: 20210421
